FAERS Safety Report 25701695 (Version 2)
Quarter: 2025Q4

REPORT INFORMATION
  Report Type: Spontaneous
  Country: EU (occurrence: EU)
  Receive Date: 20250819
  Receipt Date: 20251118
  Transmission Date: 20260118
  Serious: Yes (Other)
  Sender: AMGEN
  Company Number: EU-AMGEN-FRASP2025162425

PATIENT

DRUGS (4)
  1. CARFILZOMIB [Suspect]
     Active Substance: CARFILZOMIB
     Indication: Plasma cell myeloma refractory
     Dosage: 20 MILLIGRAM/SQ. METER (CYCLE 1DAY 1 AND CYCLE 2, DAY 2)
     Route: 065
  2. CARFILZOMIB [Suspect]
     Active Substance: CARFILZOMIB
     Dosage: 56 MILLIGRAM/SQ. METER (CYCLE 1 D AY 8 ONWARDS)
     Route: 065
  3. LINVOSELTAMAB [Suspect]
     Active Substance: LINVOSELTAMAB
     Indication: Plasma cell myeloma refractory
     Dosage: UNK UNK, QWK, IN C1-4, AND Q2W THEREAFTER
     Route: 065
  4. DEXAMETHASONE [Suspect]
     Active Substance: DEXAMETHASONE
     Indication: Plasma cell myeloma refractory
     Dosage: UNK, C0- 1
     Route: 065

REACTIONS (6)
  - Cytokine release syndrome [Unknown]
  - Neutropenia [Unknown]
  - Thrombocytopenia [Recovered/Resolved]
  - Immune effector cell-associated neurotoxicity syndrome [Unknown]
  - Infection [Unknown]
  - Tumour lysis syndrome [Unknown]
